FAERS Safety Report 8175824-8 (Version None)
Quarter: 2012Q1

REPORT INFORMATION
  Report Type: 
  Country: None (occurrence: None)
  Receive Date: 20120228
  Receipt Date: 20120228
  Transmission Date: 20120608
  Serious: No
  Sender: FDA-Public Use
  Company Number: None

PATIENT
  Sex: Male

DRUGS (2)
  1. TRAMADOL HYDROCHLORIDE AND ACETAMINOPHEN [Suspect]
     Indication: BACK PAIN
     Dosage: 1-2 EVERY 6 HOURS PRN PO
     Route: 048
     Dates: start: 20090901
  2. TRAMADOL HYDROCHLORIDE AND ACETAMINOPHEN [Suspect]
     Indication: BACK PAIN
     Dosage: 1-2 EVERY 6 HOURS PRN PO
     Route: 048
     Dates: start: 20090801

REACTIONS (2)
  - TREATMENT FAILURE [None]
  - INADEQUATE ANALGESIA [None]
